FAERS Safety Report 18817054 (Version 1)
Quarter: 2021Q1

REPORT INFORMATION
  Report Type: Other
  Country: NL (occurrence: NL)
  Receive Date: 20210201
  Receipt Date: 20210201
  Transmission Date: 20210419
  Serious: Yes (Other)
  Sender: FDA-Public Use
  Company Number: NL-ROCHE-2758848

PATIENT

DRUGS (1)
  1. VISMODEGIB. [Suspect]
     Active Substance: VISMODEGIB
     Indication: BASAL CELL CARCINOMA
     Route: 065

REACTIONS (15)
  - Dysgeusia [Unknown]
  - Abdominal pain [Unknown]
  - Muscle spasms [Unknown]
  - Weight decreased [Unknown]
  - Dizziness [Unknown]
  - Ageusia [Unknown]
  - Decreased appetite [Unknown]
  - Headache [Unknown]
  - Alopecia [Unknown]
  - Fatigue [Unknown]
  - Diarrhoea [Unknown]
  - Myalgia [Unknown]
  - Hepatotoxicity [Unknown]
  - Nausea [Unknown]
  - Asthenia [Unknown]
